FAERS Safety Report 6747927-3 (Version None)
Quarter: 2010Q2

REPORT INFORMATION
  Report Type: 
  Country: None (occurrence: None)
  Receive Date: 20100528
  Receipt Date: 20100526
  Transmission Date: 20101027
  Serious: Yes (Death, Other)
  Sender: FDA-Public Use
  Company Number: US-ELI_LILLY_AND_COMPANY-US201004003878

PATIENT
  Sex: Female
  Weight: 58.503 kg

DRUGS (1)
  1. GEMZAR [Suspect]
     Indication: BREAST CANCER
     Dates: start: 20100308, end: 20100322

REACTIONS (1)
  - MALIGNANT NEOPLASM PROGRESSION [None]
